FAERS Safety Report 5070539-7 (Version None)
Quarter: 2006Q3

REPORT INFORMATION
  Report Type: 
  Country: None (occurrence: None)
  Receive Date: 20060804
  Receipt Date: 20060725
  Transmission Date: 20061208
  Serious: Yes (Other)
  Sender: FDA-Public Use
  Company Number: PHFR2006GB02323

PATIENT
  Sex: Female

DRUGS (2)
  1. TEGRETOL [Suspect]
     Dosage: 1000MG/DAY
     Route: 065
  2. VITAMIN A [Suspect]
     Dosage: 650UG/DAY
     Route: 065

REACTIONS (4)
  - DRUG INTERACTION [None]
  - HEADACHE [None]
  - INTRACRANIAL PRESSURE INCREASED [None]
  - VITAMIN A INCREASED [None]
